FAERS Safety Report 8756956 (Version 2)
Quarter: 2012Q4

REPORT INFORMATION
  Report Type: Report from Study
  Country: JP (occurrence: JP)
  Receive Date: 20120828
  Receipt Date: 20121210
  Transmission Date: 20130627
  Serious: Yes (Other)
  Sender: FDA-Public Use
  Company Number: JP-VERTEX PHARMACEUTICAL INC.-AE-2012-010541

PATIENT
  Age: 58 Year
  Sex: Female

DRUGS (10)
  1. VX-950 (TELAPREVIR) [Suspect]
     Indication: HEPATITIS C
     Dosage: 1500 mg, qd
     Route: 048
     Dates: start: 20120508, end: 20120801
  2. RIBAVIRIN [Suspect]
     Indication: HEPATITIS C
     Dosage: 600 mg, qd
     Route: 048
     Dates: start: 20120508, end: 20120703
  3. RIBAVIRIN [Suspect]
     Dosage: 400 mg, qd
     Route: 048
     Dates: start: 20120704, end: 20120925
  4. RIBAVIRIN [Suspect]
     Dosage: 600 mg, qd
     Route: 048
     Dates: start: 20120926, end: 20121017
  5. PEGINTERFERON ALFA-2B [Suspect]
     Indication: HEPATITIS C
     Dosage: 1.5 ?g/kg, qw
     Route: 058
     Dates: start: 20120508, end: 20121017
  6. FEROTYM [Concomitant]
     Dosage: 100 mg, qd
     Route: 048
  7. LIVALO [Concomitant]
     Dosage: 1 mg, qd
     Route: 048
  8. EPADEL S [Concomitant]
     Dosage: 180 mg, qd
     Route: 048
  9. CLARITIN REDITABS [Concomitant]
     Dosage: 10 mg, qd
     Route: 048
  10. POTASSIUM IODIDE [Concomitant]
     Dosage: 50 mg, qd
     Route: 048

REACTIONS (5)
  - Rash [Recovered/Resolved]
  - Anaemia [Not Recovered/Not Resolved]
  - Anaemia [Not Recovered/Not Resolved]
  - Anaemia [Not Recovered/Not Resolved]
  - Platelet count decreased [Not Recovered/Not Resolved]
